FAERS Safety Report 13169525 (Version 2)
Quarter: 2017Q4

REPORT INFORMATION
  Report Type: Spontaneous
  Country: US (occurrence: US)
  Receive Date: 20170201
  Receipt Date: 20171103
  Transmission Date: 20180320
  Serious: Yes (Other)
  Sender: FDA-Public Use
  Company Number: US-TEVA-729152ACC

PATIENT
  Sex: Female

DRUGS (5)
  1. XANAX XR [Concomitant]
     Active Substance: ALPRAZOLAM
  2. PROBIOTICA [Concomitant]
     Active Substance: PROBIOTICS NOS
  3. COPAXONE [Suspect]
     Active Substance: GLATIRAMER ACETATE
     Indication: MULTIPLE SCLEROSIS
     Route: 058
     Dates: start: 20160927
  4. CLARITIN [Concomitant]
     Active Substance: LORATADINE
  5. ALLEGRA [Concomitant]
     Active Substance: FEXOFENADINE HYDROCHLORIDE

REACTIONS (5)
  - Injection site pruritus [Not Recovered/Not Resolved]
  - Injection site bruising [Not Recovered/Not Resolved]
  - Vertigo [Unknown]
  - Injection site swelling [Not Recovered/Not Resolved]
  - Optic neuritis [Not Recovered/Not Resolved]
